FAERS Safety Report 24622798 (Version 1)
Quarter: 2024Q4

REPORT INFORMATION
  Report Type: Report from Study
  Country: IE (occurrence: IE)
  Receive Date: 20241115
  Receipt Date: 20241115
  Transmission Date: 20250114
  Serious: Yes (Other)
  Sender: TAKEDA
  Company Number: IE-TAKEDA-2022TUS072708

PATIENT
  Age: 56 Year
  Sex: Male

DRUGS (7)
  1. VEDOLIZUMAB [Suspect]
     Active Substance: VEDOLIZUMAB
     Indication: Colitis ulcerative
     Dosage: UNK
  2. VEDOLIZUMAB [Suspect]
     Active Substance: VEDOLIZUMAB
     Indication: Colitis ulcerative
     Dosage: 108 MILLIGRAM
  3. VEDOLIZUMAB [Suspect]
     Active Substance: VEDOLIZUMAB
  4. VEDOLIZUMAB [Suspect]
     Active Substance: VEDOLIZUMAB
  5. VEDOLIZUMAB [Suspect]
     Active Substance: VEDOLIZUMAB
  6. XARELTO [Concomitant]
     Active Substance: RIVAROXABAN
     Dosage: 20 MILLIGRAM, QD
  7. Salofalk [Concomitant]
     Dosage: 3 GRAM, QD

REACTIONS (5)
  - Rectal haemorrhage [Recovering/Resolving]
  - Product dose omission issue [Recovering/Resolving]
  - Fatigue [Recovering/Resolving]
  - Inappropriate schedule of product administration [Unknown]
  - Joint injury [Unknown]

NARRATIVE: CASE EVENT DATE: 20221006
